FAERS Safety Report 7963210-2 (Version None)
Quarter: 2011Q4

REPORT INFORMATION
  Report Type: 
  Country: None (occurrence: None)
  Receive Date: 20111208
  Receipt Date: 20111130
  Transmission Date: 20120403
  Serious: Yes (Hospitalization, Other)
  Sender: FDA-Public Use
  Company Number: US-BIOGENIDEC-2011BI044419

PATIENT
  Sex: Female

DRUGS (2)
  1. AVONEX [Suspect]
     Indication: MULTIPLE SCLEROSIS
     Route: 030
     Dates: start: 20010101
  2. AVONEX [Suspect]
     Route: 030

REACTIONS (6)
  - MUSCLE SPASTICITY [None]
  - HIV TEST POSITIVE [None]
  - PNEUMONIA [None]
  - DERMATITIS ALLERGIC [None]
  - MULTIPLE SCLEROSIS RELAPSE [None]
  - CONVULSION [None]
